FAERS Safety Report 21382707 (Version 5)
Quarter: 2024Q2

REPORT INFORMATION
  Report Type: Spontaneous
  Country: US (occurrence: US)
  Receive Date: 20220927
  Receipt Date: 20240502
  Transmission Date: 20240715
  Serious: No
  Sender: FDA-Public Use
  Company Number: US-PFIZER INC-PV202200071536

PATIENT
  Age: 60 Year
  Sex: Male

DRUGS (1)
  1. INLYTA [Suspect]
     Active Substance: AXITINIB
     Indication: Neoplasm malignant
     Dosage: 5 MG, 2X/DAY

REACTIONS (7)
  - Neoplasm progression [Unknown]
  - Emotional disorder [Unknown]
  - Thinking abnormal [Unknown]
  - Aggression [Unknown]
  - Anger [Unknown]
  - Personality change [Unknown]
  - Fatigue [Recovered/Resolved]
